FAERS Safety Report 6346682-9 (Version None)
Quarter: 2009Q3

REPORT INFORMATION
  Report Type: 
  Country: None (occurrence: None)
  Receive Date: 20090909
  Receipt Date: 20090831
  Transmission Date: 20100115
  Serious: Yes (Hospitalization)
  Sender: FDA-Public Use
  Company Number: JP-AMGEN-US362910

PATIENT
  Age: 67 Year
  Sex: Male

DRUGS (8)
  1. ENBREL [Suspect]
     Indication: RHEUMATOID ARTHRITIS
     Route: 058
     Dates: start: 20090626, end: 20090817
  2. PROGRAF [Suspect]
     Indication: DRUG USE FOR UNKNOWN INDICATION
     Route: 048
  3. LOXONIN [Suspect]
     Indication: DRUG USE FOR UNKNOWN INDICATION
     Dosage: UNSPECIFIED
     Route: 048
  4. PREDONINE [Concomitant]
     Dosage: UNSPECIFIED
     Route: 048
  5. GLIBENCLAMIDE [Concomitant]
     Dosage: UNSPECIFIED
     Route: 048
  6. MUCOSTA [Concomitant]
     Dosage: UNSPECIFIED
     Route: 048
  7. MELBIN [Concomitant]
     Dosage: UNSPECIFIED
     Route: 048
  8. ACTOS [Concomitant]
     Dosage: UNSPECIFIED
     Route: 048

REACTIONS (1)
  - VASCULITIS [None]
